FAERS Safety Report 7829252-2 (Version None)
Quarter: 2011Q4

REPORT INFORMATION
  Report Type: 
  Country: None (occurrence: None)
  Receive Date: 20111020
  Receipt Date: 20111010
  Transmission Date: 20120403
  Serious: Yes (Other)
  Sender: FDA-Public Use
  Company Number: AU-B.I. PHARMACEUTICALS,INC./RIDGEFIELD-2011-AU-01720AU

PATIENT
  Sex: Female
  Weight: 52 kg

DRUGS (2)
  1. COVERSYL PLUS [Concomitant]
     Dosage: 4/12.5 MG
  2. PRAMIPEXOLE DIHYDROCHLORIDE [Suspect]
     Indication: PARKINSON'S DISEASE
     Dates: start: 20110709

REACTIONS (7)
  - FRACTURED SKULL DEPRESSED [None]
  - DIZZINESS [None]
  - SPINAL COMPRESSION FRACTURE [None]
  - LOSS OF CONSCIOUSNESS [None]
  - NAUSEA [None]
  - FALL [None]
  - VOMITING [None]
